FAERS Safety Report 8961864 (Version 1)
Quarter: 2012Q4

REPORT INFORMATION
  Report Type: 
  Country: JP (occurrence: JP)
  Receive Date: 20121213
  Receipt Date: 20121213
  Transmission Date: 20130627
  Serious: Yes (Hospitalization)
  Sender: FDA-Public Use
  Company Number: JP-009507513-2012SP031042

PATIENT
  Age: 54 Year
  Sex: Male
  Weight: 69 kg

DRUGS (4)
  1. PEGINTRON [Suspect]
     Indication: CHRONIC HEPATITIS C
     Dosage: 1.5 Microgram per kilogram, qw
     Route: 058
     Dates: start: 20120404, end: 20120525
  2. REBETOL [Suspect]
     Indication: CHRONIC HEPATITIS C
     Dosage: 800 mg, qd
     Route: 048
     Dates: start: 20120404, end: 20120525
  3. TELAVIC [Suspect]
     Indication: CHRONIC HEPATITIS C
     Dosage: 1500 mg, qd
     Route: 048
     Dates: start: 20120404, end: 20120523
  4. GASTER [Concomitant]
     Indication: PROPHYLAXIS
     Dosage: 40 mg, qd (Formulation: POR)
     Route: 048
     Dates: start: 20120409, end: 20120524

REACTIONS (1)
  - Rash [Recovered/Resolved]
